FAERS Safety Report 7422016-3 (Version None)
Quarter: 2011Q2

REPORT INFORMATION
  Report Type: 
  Country: None (occurrence: None)
  Receive Date: 20110418
  Receipt Date: 20110415
  Transmission Date: 20111010
  Serious: Yes (Other)
  Sender: FDA-Public Use
  Company Number: US-PFIZER INC-2011083625

PATIENT
  Age: 49 Year
  Sex: Female

DRUGS (1)
  1. LYRICA [Suspect]
     Indication: CONVULSION
     Dosage: UNK
     Route: 048

REACTIONS (2)
  - WEIGHT INCREASED [None]
  - HEADACHE [None]
